FAERS Safety Report 19036006 (Version 2)
Quarter: 2021Q2

REPORT INFORMATION
  Report Type: Report from Study
  Country: MX (occurrence: MX)
  Receive Date: 20210321
  Receipt Date: 20210415
  Transmission Date: 20210717
  Serious: Yes (Death)
  Sender: FDA-Public Use
  Company Number: NVSC2020MX086630

PATIENT
  Age: 84 Year
  Sex: Male
  Weight: 65 kg

DRUGS (3)
  1. EXFORGE HCT [Suspect]
     Active Substance: AMLODIPINE BESYLATE\HYDROCHLOROTHIAZIDE\VALSARTAN
     Dosage: 1 DF, QD (10/320/25 MG)
     Route: 048
     Dates: end: 20210310
  2. EXFORGE HCT [Suspect]
     Active Substance: AMLODIPINE BESYLATE\HYDROCHLOROTHIAZIDE\VALSARTAN
     Indication: HYPERTENSION
     Dosage: 1 DF, BID (5/160/12.5MG), 8 YEARS AGO APPROXIMATELY.
     Route: 048
  3. EXFORGE HCT [Suspect]
     Active Substance: AMLODIPINE BESYLATE\HYDROCHLOROTHIAZIDE\VALSARTAN
     Dosage: 1 DF, BID (10/320/25 MG), 5 YEARS AGO AROUND, IN THE MORNING AND AT THE NIGHT
     Route: 048

REACTIONS (11)
  - Death [Fatal]
  - Memory impairment [Unknown]
  - Vomiting [Unknown]
  - Pallor [Unknown]
  - General physical health deterioration [Unknown]
  - Depressed mood [Unknown]
  - Chest pain [Unknown]
  - Product prescribing error [Unknown]
  - Inappropriate schedule of product administration [Unknown]
  - Nausea [Unknown]
  - Headache [Unknown]

NARRATIVE: CASE EVENT DATE: 20210311
